FAERS Safety Report 8141692-3 (Version None)
Quarter: 2012Q1

REPORT INFORMATION
  Report Type: 
  Country: None (occurrence: None)
  Receive Date: 20120216
  Receipt Date: 20120209
  Transmission Date: 20120608
  Serious: Yes (Other)
  Sender: FDA-Public Use
  Company Number: PHEH2012US003539

PATIENT
  Sex: Female
  Weight: 176 kg

DRUGS (10)
  1. AROMASIN [Concomitant]
  2. SIMVASTATIN [Concomitant]
  3. LETROZOLE [Concomitant]
  4. ASPIRIN [Concomitant]
  5. MICARDIS [Concomitant]
  6. ZOMETA [Suspect]
     Indication: BREAST CANCER
  7. HYDROCHLOROTHIAZIDE [Concomitant]
  8. NORVASC [Concomitant]
  9. METOPROLOL SUCCINATE [Concomitant]
  10. ACETAMINOPHEN [Concomitant]

REACTIONS (8)
  - BONE DISORDER [None]
  - RENAL MASS [None]
  - ANAEMIA [None]
  - SCIATICA [None]
  - NEOPLASM MALIGNANT [None]
  - NEOPLASM PROGRESSION [None]
  - RENAL FAILURE [None]
  - FATIGUE [None]
